FAERS Safety Report 9305463 (Version 1)
Quarter: 2013Q2

REPORT INFORMATION
  Report Type: Spontaneous
  Country: US (occurrence: US)
  Receive Date: 20130523
  Receipt Date: 20130523
  Transmission Date: 20140414
  Serious: No
  Sender: FDA-Public Use
  Company Number: US-BAYER-2013-062765

PATIENT
  Sex: Female

DRUGS (2)
  1. ALEVE TABLET [Suspect]
     Indication: ANALGESIC THERAPY
     Dosage: 2 DF, QD
     Route: 048
     Dates: start: 20130508, end: 20130509
  2. CORTIZONE [Concomitant]

REACTIONS (2)
  - Erythema [Not Recovered/Not Resolved]
  - Incorrect dose administered [None]
